FAERS Safety Report 7887897-8 (Version None)
Quarter: 2011Q4

REPORT INFORMATION
  Report Type: 
  Country: None (occurrence: None)
  Receive Date: 20111103
  Receipt Date: 20111103
  Transmission Date: 20120403
  Serious: Yes (Other)
  Sender: FDA-Public Use
  Company Number: None

PATIENT
  Age: 50 Year
  Sex: Female
  Weight: 89.357 kg

DRUGS (2)
  1. ROBAXIN [Concomitant]
     Indication: MUSCLE SPASMS
     Dosage: 1-2 TABLETS
     Route: 048
     Dates: start: 20110701, end: 20110901
  2. ZANAFLEX [Suspect]
     Indication: MUSCLE SPASMS
     Dosage: 1-2 TABLETS
     Route: 048
     Dates: start: 20090901, end: 20110901

REACTIONS (5)
  - RASH [None]
  - GENITAL ULCERATION [None]
  - MOUTH ULCERATION [None]
  - STOMATITIS [None]
  - LICHENOID KERATOSIS [None]
